FAERS Safety Report 5590917-7 (Version None)
Quarter: 2008Q1

REPORT INFORMATION
  Report Type: 
  Country: None (occurrence: None)
  Receive Date: 20080115
  Receipt Date: 20080110
  Transmission Date: 20080703
  Serious: Yes (Death)
  Sender: FDA-Public Use
  Company Number: SE-BAYER-200810544GPV

PATIENT
  Age: 19 Year
  Sex: Female
  Weight: 60 kg

DRUGS (2)
  1. YASMIN / DROSPIRENON, ETHINYLESTRADIOL [Suspect]
     Indication: ORAL CONTRACEPTION
     Route: 048
     Dates: start: 20070201
  2. KAVEPENIN / FENOXIMETHYLPENICILLIN [Concomitant]
     Indication: PNEUMONIA
     Dates: start: 20071203

REACTIONS (5)
  - CIRCULATORY COLLAPSE [None]
  - DYSPNOEA [None]
  - INFLUENZA LIKE ILLNESS [None]
  - PNEUMONIA [None]
  - PULMONARY EMBOLISM [None]
